FAERS Safety Report 6916625-5 (Version None)
Quarter: 2010Q3

REPORT INFORMATION
  Report Type: 
  Country: None (occurrence: None)
  Receive Date: 20100810
  Receipt Date: 20100728
  Transmission Date: 20110219
  Serious: Yes (Other)
  Sender: FDA-Public Use
  Company Number: US-BAYER-201027127NA

PATIENT
  Age: 41 Year
  Sex: Female

DRUGS (1)
  1. MIRENA [Suspect]
     Indication: MENORRHAGIA
     Dosage: FREQUENCY CONTINUOUS
     Route: 015
     Dates: start: 20100423, end: 20100712

REACTIONS (13)
  - ABDOMINAL PAIN [None]
  - ABDOMINAL PAIN UPPER [None]
  - BACK PAIN [None]
  - BODY TEMPERATURE INCREASED [None]
  - BREAST PAIN [None]
  - DEVICE DISLOCATION [None]
  - HEADACHE [None]
  - SENSATION OF FOREIGN BODY [None]
  - SKIN ODOUR ABNORMAL [None]
  - UNEVALUABLE EVENT [None]
  - UTERINE INFLAMMATION [None]
  - VAGINAL HAEMORRHAGE [None]
  - VOMITING [None]
